FAERS Safety Report 22011339 (Version 1)
Quarter: 2023Q1

REPORT INFORMATION
  Report Type: Spontaneous
  Country: CA (occurrence: CA)
  Receive Date: 20230220
  Receipt Date: 20230220
  Transmission Date: 20230418
  Serious: Yes (Other)
  Sender: FDA-Public Use
  Company Number: CA-TEVA-2023-CA-2856380

PATIENT

DRUGS (2)
  1. IMATINIB MESYLATE [Suspect]
     Active Substance: IMATINIB MESYLATE
     Indication: Chronic myeloid leukaemia
     Dosage: THERAPY DURATION : 341.0 DAYS
     Route: 065
  2. IMATINIB MESYLATE [Suspect]
     Active Substance: IMATINIB MESYLATE
     Route: 065

REACTIONS (4)
  - Ocular discomfort [Recovered/Resolved]
  - Pancytopenia [Recovered/Resolved]
  - Therapeutic response decreased [Recovered/Resolved]
  - Drug intolerance [Recovered/Resolved]
